FAERS Safety Report 22591111 (Version 2)
Quarter: 2023Q2

REPORT INFORMATION
  Report Type: Spontaneous
  Country: US (occurrence: US)
  Receive Date: 20230612
  Receipt Date: 20230615
  Transmission Date: 20230721
  Serious: Yes (Life-Threatening, Hospitalization, Other)
  Sender: FDA-Public Use
  Company Number: US-MLMSERVICE-20230601-4319848-1

PATIENT
  Age: 57 Year
  Sex: Male

DRUGS (4)
  1. KETAMINE HYDROCHLORIDE [Suspect]
     Active Substance: KETAMINE HYDROCHLORIDE
     Indication: General anaesthesia
     Dosage: 5 MCG/KG/MIN
     Route: 042
  2. SUFENTANIL CITRATE [Suspect]
     Active Substance: SUFENTANIL CITRATE
     Indication: General anaesthesia
     Dosage: 0.3 MCG/KG/HR
     Route: 042
  3. PROPOFOL [Suspect]
     Active Substance: PROPOFOL
     Dosage: CONTINUOUS DRIPS TITRATED BETWEEN 125-300 MCG/KG/MIN
     Route: 042
  4. PHENYLEPHRINE [Concomitant]
     Active Substance: PHENYLEPHRINE HYDROCHLORIDE
     Dosage: 35 MCG/MIN

REACTIONS (3)
  - Depressed level of consciousness [Unknown]
  - Delayed recovery from anaesthesia [Unknown]
  - Hypotension [Unknown]
